FAERS Safety Report 16342169 (Version 1)
Quarter: 2019Q2

REPORT INFORMATION
  Report Type: Spontaneous
  Country: US (occurrence: US)
  Receive Date: 20190522
  Receipt Date: 20190522
  Transmission Date: 20190711
  Serious: Yes (Other)
  Sender: FDA-Public Use
  Company Number: US-ROCHE-2320506

PATIENT
  Age: 74 Year
  Sex: Female

DRUGS (2)
  1. CELLCEPT [Suspect]
     Active Substance: MYCOPHENOLATE MOFETIL\MYCOPHENOLATE MOFETIL HYDROCHLORIDE
     Indication: HYPERSENSITIVITY PNEUMONITIS
     Route: 065
  2. CELLCEPT [Suspect]
     Active Substance: MYCOPHENOLATE MOFETIL\MYCOPHENOLATE MOFETIL HYDROCHLORIDE
     Indication: OFF LABEL USE

REACTIONS (6)
  - Off label use [Unknown]
  - Pneumocystis jirovecii pneumonia [Unknown]
  - Hypersensitivity pneumonitis [Unknown]
  - Weight decreased [Unknown]
  - Pulmonary oedema [Unknown]
  - Intentional product use issue [Unknown]
